FAERS Safety Report 22134907 (Version 1)
Quarter: 2023Q1

REPORT INFORMATION
  Report Type: Other
  Country: CA (occurrence: CA)
  Receive Date: 20230324
  Receipt Date: 20230324
  Transmission Date: 20230417
  Serious: Yes (Hospitalization, Other)
  Sender: FDA-Public Use
  Company Number: CA-APOTEX-2023AP005652

PATIENT
  Age: 76 Year
  Sex: Female

DRUGS (1)
  1. LENALIDOMIDE [Suspect]
     Active Substance: LENALIDOMIDE
     Indication: Plasma cell myeloma
     Dosage: 15 MILLIGRAM, CYCLICAL
     Route: 048

REACTIONS (5)
  - Failure to thrive [Unknown]
  - Malaise [Unknown]
  - Product dose omission issue [Unknown]
  - Heart rate decreased [Unknown]
  - Fall [Unknown]
